FAERS Safety Report 16237850 (Version 2)
Quarter: 2022Q1

REPORT INFORMATION
  Report Type: Spontaneous
  Country: DE (occurrence: DE)
  Receive Date: 20190425
  Receipt Date: 20220304
  Transmission Date: 20220423
  Serious: Yes (Other)
  Sender: FDA-Public Use
  Company Number: DE-TEVA-2019-DE-1042142

PATIENT
  Age: 60 Year
  Sex: Male

DRUGS (12)
  1. VALPROATE [Suspect]
     Active Substance: VALPROIC ACID
     Indication: Post-anoxic myoclonus
     Route: 065
  2. GABAPENTIN [Suspect]
     Active Substance: GABAPENTIN
     Indication: Post-anoxic myoclonus
     Route: 065
  3. ZONISAMIDE [Suspect]
     Active Substance: ZONISAMIDE
     Indication: Post-anoxic myoclonus
     Route: 065
  4. LAMOTRIGINE [Suspect]
     Active Substance: LAMOTRIGINE
     Indication: Post-anoxic myoclonus
     Route: 065
  5. TOPIRAMATE [Suspect]
     Active Substance: TOPIRAMATE
     Indication: Post-anoxic myoclonus
     Route: 065
  6. CLONAZEPAM [Suspect]
     Active Substance: CLONAZEPAM
     Indication: Post-anoxic myoclonus
     Dosage: UP TO 1.5MG PER DAY
     Route: 065
  7. BRIVARACETAM [Suspect]
     Active Substance: BRIVARACETAM
     Indication: Post-anoxic myoclonus
     Dosage: MAXIMUM DAILY DOSE OF 150MG
     Route: 065
  8. PERAMPANEL [Suspect]
     Active Substance: PERAMPANEL
     Indication: Post-anoxic myoclonus
     Dosage: MAXIMUM DAILY DOSE: 8MG
     Route: 065
  9. LEVETIRACETAM [Concomitant]
     Active Substance: LEVETIRACETAM
     Indication: Post-anoxic myoclonus
     Dosage: MAXIMUM DAILY DOSE OF 1500MG
     Route: 065
  10. PREGABALIN [Concomitant]
     Active Substance: PREGABALIN
     Indication: Post-anoxic myoclonus
     Route: 065
  11. ESLICARBAZEPINE [Concomitant]
     Active Substance: ESLICARBAZEPINE
     Indication: Post-anoxic myoclonus
     Route: 065
  12. PIRACETAM [Concomitant]
     Active Substance: PIRACETAM
     Indication: Post-anoxic myoclonus
     Dosage: MAXIMUM DAILY DOSE: 2400MG
     Route: 065

REACTIONS (11)
  - Parkinsonism [Unknown]
  - Dystonia [Unknown]
  - Fatigue [Unknown]
  - Speech disorder [Unknown]
  - Salivary hypersecretion [Unknown]
  - Nausea [Unknown]
  - Vomiting [Unknown]
  - Rash [Unknown]
  - Aggression [Unknown]
  - Myoclonus [Unknown]
  - Condition aggravated [Unknown]
